FAERS Safety Report 16640664 (Version 1)
Quarter: 2019Q3

REPORT INFORMATION
  Report Type: Spontaneous
  Country: US (occurrence: US)
  Receive Date: 20190729
  Receipt Date: 20190729
  Transmission Date: 20191004
  Serious: Yes (Hospitalization)
  Sender: FDA-Public Use
  Company Number: US-STRIDES ARCOLAB LIMITED-2019SP004584

PATIENT
  Age: 51 Year
  Sex: Male

DRUGS (3)
  1. TACROLIMUS. [Suspect]
     Active Substance: TACROLIMUS
     Indication: IMMUNOSUPPRESSANT DRUG THERAPY
     Dosage: UNK
     Route: 065
  2. PREDNISOLONE. [Suspect]
     Active Substance: PREDNISOLONE
     Indication: IMMUNOSUPPRESSANT DRUG THERAPY
     Dosage: UNK
     Route: 065
  3. MYCOPHENOLATE MOFETIL. [Suspect]
     Active Substance: MYCOPHENOLATE MOFETIL
     Indication: IMMUNOSUPPRESSANT DRUG THERAPY
     Dosage: UNK
     Route: 065

REACTIONS (17)
  - Vertigo [Unknown]
  - Vomiting [Unknown]
  - Quadriplegia [Not Recovered/Not Resolved]
  - Malaise [Unknown]
  - Pupillary light reflex tests abnormal [Unknown]
  - Dysarthria [Unknown]
  - Depressed level of consciousness [Unknown]
  - Hypokinesia [Unknown]
  - West Nile viral infection [Not Recovered/Not Resolved]
  - Back pain [Unknown]
  - Diarrhoea [Unknown]
  - Encephalitis [Unknown]
  - Pyrexia [Unknown]
  - Headache [Unknown]
  - Muscular weakness [Unknown]
  - Respiratory failure [Unknown]
  - Urinary retention [Unknown]

NARRATIVE: CASE EVENT DATE: 2016
